FAERS Safety Report 15130704 (Version 4)
Quarter: 2019Q1

REPORT INFORMATION
  Report Type: Spontaneous
  Country: FR (occurrence: FR)
  Receive Date: 20180711
  Receipt Date: 20190315
  Transmission Date: 20190417
  Serious: Yes (Disabling, Other)
  Sender: FDA-Public Use
  Company Number: FR-AMGEN-FRASP2017160055

PATIENT
  Age: 74 Year
  Sex: Female

DRUGS (1)
  1. PROLIA [Suspect]
     Active Substance: DENOSUMAB
     Indication: OSTEOPOROSIS POSTMENOPAUSAL
     Dosage: 60 UNK, Q6MO
     Route: 065
     Dates: start: 201406, end: 201506

REACTIONS (2)
  - Spinal compression fracture [Recovered/Resolved]
  - Embolism [Unknown]

NARRATIVE: CASE EVENT DATE: 201605
